FAERS Safety Report 17918487 (Version 3)
Quarter: 2023Q1

REPORT INFORMATION
  Report Type: Spontaneous
  Country: US (occurrence: None)
  Receive Date: 20200619
  Receipt Date: 20230321
  Transmission Date: 20230417
  Serious: Yes (Other)
  Sender: FDA-Public Use
  Company Number: 2020SE77665

PATIENT
  Age: 911 Month
  Sex: Male
  Weight: 95.3 kg

DRUGS (53)
  1. PRILOSEC [Suspect]
     Active Substance: OMEPRAZOLE MAGNESIUM
     Indication: Gastrooesophageal reflux disease
     Dates: start: 200107, end: 201912
  2. PRILOSEC [Suspect]
     Active Substance: OMEPRAZOLE MAGNESIUM
     Indication: Gastrooesophageal reflux disease
     Route: 048
     Dates: start: 199801, end: 200201
  3. PRILOSEC [Suspect]
     Active Substance: OMEPRAZOLE MAGNESIUM
     Indication: Gastrooesophageal reflux disease
     Dosage: GENERIC
     Dates: start: 20170417
  4. PRILOSEC [Suspect]
     Active Substance: OMEPRAZOLE MAGNESIUM
     Indication: Gastrooesophageal reflux disease
     Route: 048
     Dates: start: 199801, end: 2019
  5. PRILOSEC [Suspect]
     Active Substance: OMEPRAZOLE MAGNESIUM
     Indication: Gastrooesophageal reflux disease
     Dosage: GENERIC
     Dates: start: 2011, end: 2019
  6. PRILOSEC OTC [Suspect]
     Active Substance: OMEPRAZOLE MAGNESIUM
     Indication: Gastrooesophageal reflux disease
     Route: 048
     Dates: start: 200107, end: 201912
  7. PRILOSEC OTC [Suspect]
     Active Substance: OMEPRAZOLE MAGNESIUM
     Indication: Gastrooesophageal reflux disease
     Route: 048
     Dates: start: 200407, end: 200701
  8. PRILOSEC OTC [Suspect]
     Active Substance: OMEPRAZOLE MAGNESIUM
     Indication: Gastrooesophageal reflux disease
     Route: 048
     Dates: start: 200407, end: 2019
  9. PROTONIX [Suspect]
     Active Substance: PANTOPRAZOLE SODIUM
     Indication: Gastrooesophageal reflux disease
     Dates: start: 200107, end: 201912
  10. PROTONIX [Suspect]
     Active Substance: PANTOPRAZOLE SODIUM
     Indication: Gastrooesophageal reflux disease
     Dates: start: 200103, end: 201012
  11. PROTONIX [Suspect]
     Active Substance: PANTOPRAZOLE SODIUM
     Indication: Gastrooesophageal reflux disease
     Dates: start: 200103, end: 2019
  12. PROTONIX [Suspect]
     Active Substance: PANTOPRAZOLE SODIUM
     Indication: Gastrooesophageal reflux disease
     Dosage: GENERIC
     Dates: start: 2013
  13. DOXYCYCLINE [Concomitant]
     Active Substance: DOXYCYCLINE
     Indication: Antibiotic therapy
     Route: 065
     Dates: start: 20150417
  14. FUROSEMIDE [Concomitant]
     Active Substance: FUROSEMIDE
     Indication: Diuretic therapy
     Route: 065
     Dates: start: 20190610
  15. FINASTERIDE [Concomitant]
     Active Substance: FINASTERIDE
     Indication: Benign prostatic hyperplasia
     Route: 065
     Dates: start: 20160326
  16. AMOX/CLAVULA [Concomitant]
     Indication: Antibiotic therapy
     Dates: start: 20160629
  17. AMOX/CLAVULA [Concomitant]
     Indication: Infection
     Dates: start: 20160629
  18. ASPIRIN [Concomitant]
     Active Substance: ASPIRIN
     Indication: Blood pressure measurement
     Route: 065
     Dates: start: 2018
  19. CARVEDILOL [Concomitant]
     Active Substance: CARVEDILOL
     Dates: start: 20190607
  20. ATORVASTATIN [Concomitant]
     Active Substance: ATORVASTATIN
     Dates: start: 20190607
  21. LANTUS [Concomitant]
     Active Substance: INSULIN GLARGINE
     Dates: start: 20190607
  22. NOVOLOG [Concomitant]
     Active Substance: INSULIN ASPART
     Dates: start: 20190607
  23. COMBIGAN [Concomitant]
     Active Substance: BRIMONIDINE TARTRATE\TIMOLOL MALEATE
     Dates: start: 20190607
  24. LATANOPROST [Concomitant]
     Active Substance: LATANOPROST
     Dates: start: 20190607
  25. VELTASSA [Concomitant]
     Active Substance: PATIROMER
     Dates: start: 20190607
  26. BUPROPION HYDROCHLORIDE [Concomitant]
     Active Substance: BUPROPION HYDROCHLORIDE
     Dates: start: 20190607
  27. FERROUS SULFATE [Concomitant]
     Active Substance: FERROUS SULFATE
     Dates: start: 20190607
  28. NITROFURANTOIN [Concomitant]
     Active Substance: NITROFURANTOIN
  29. RANITIDINE [Concomitant]
     Active Substance: RANITIDINE
  30. CIPROFLOXACIN [Concomitant]
     Active Substance: CIPROFLOXACIN
  31. HYDROCORTISONE [Concomitant]
     Active Substance: HYDROCORTISONE
  32. ALPRAZOLAM [Concomitant]
     Active Substance: ALPRAZOLAM
  33. TRIAMCINOLON [Concomitant]
  34. LISINOPRIL [Concomitant]
     Active Substance: LISINOPRIL
  35. LIDOCAINE [Concomitant]
     Active Substance: LIDOCAINE
  36. GENTAMICIN [Concomitant]
     Active Substance: GENTAMICIN
  37. AMLODIPINE BESYLATE [Concomitant]
     Active Substance: AMLODIPINE BESYLATE
  38. TIMOLOL MALEATE [Concomitant]
     Active Substance: TIMOLOL MALEATE
  39. HYDROXYZINE [Concomitant]
     Active Substance: HYDROXYZINE HYDROCHLORIDE
  40. GLYBURIDE [Concomitant]
     Active Substance: GLYBURIDE
  41. HYDROCHLOROTHIAZIDE [Concomitant]
     Active Substance: HYDROCHLOROTHIAZIDE
  42. INDOMETHACIN [Concomitant]
     Active Substance: INDOMETHACIN
  43. ALLOPURINOL [Concomitant]
     Active Substance: ALLOPURINOL
  44. METFORMIN [Concomitant]
     Active Substance: METFORMIN HYDROCHLORIDE
  45. SIMVASTATIN [Concomitant]
     Active Substance: SIMVASTATIN
  46. TERAZOSIN [Concomitant]
     Active Substance: TERAZOSIN HYDROCHLORIDE
  47. TETRACYCLINE [Concomitant]
     Active Substance: TETRACYCLINE
  48. GLIPIZIDE [Concomitant]
     Active Substance: GLIPIZIDE
  49. VARDENAFIL [Concomitant]
     Active Substance: VARDENAFIL HYDROCHLORIDE
  50. SILDENAFIL CITRATE [Concomitant]
     Active Substance: SILDENAFIL CITRATE
  51. FOSINOPRIL [Concomitant]
     Active Substance: FOSINOPRIL
  52. CAPTOPRIL [Concomitant]
     Active Substance: CAPTOPRIL
  53. CHOLECALCIFEROL [Concomitant]
     Active Substance: CHOLECALCIFEROL

REACTIONS (4)
  - Chronic kidney disease [Not Recovered/Not Resolved]
  - End stage renal disease [Not Recovered/Not Resolved]
  - Hyperparathyroidism secondary [Unknown]
  - Nephrogenic anaemia [Unknown]

NARRATIVE: CASE EVENT DATE: 20161001
